FAERS Safety Report 23226523 (Version 1)
Quarter: 2023Q4

REPORT INFORMATION
  Report Type: Spontaneous
  Country: US (occurrence: US)
  Receive Date: 20231124
  Receipt Date: 20231124
  Transmission Date: 20240109
  Serious: No
  Sender: FDA-Public Use
  Company Number: US-002147023-NVSC2023US193613

PATIENT
  Sex: Female

DRUGS (1)
  1. COMBIPATCH [Suspect]
     Active Substance: ESTRADIOL\NORETHINDRONE ACETATE
     Indication: Product used for unknown indication
     Dosage: 0.05/0.14 MG, EVERY WEDNESDAYS AND SUNDAYS
     Route: 062

REACTIONS (2)
  - Product adhesion issue [Recovered/Resolved]
  - Product temperature excursion issue [Not Recovered/Not Resolved]
